FAERS Safety Report 24924107 (Version 1)
Quarter: 2025Q1

REPORT INFORMATION
  Report Type: Report from Study
  Country: US (occurrence: US)
  Receive Date: 20250204
  Receipt Date: 20250204
  Transmission Date: 20250409
  Serious: Yes (Other)
  Sender: MYLAN
  Company Number: US-MYLANLABS-2025M1009392

PATIENT
  Age: 40 Year
  Sex: Female

DRUGS (7)
  1. ATORVASTATIN [Interacting]
     Active Substance: ATORVASTATIN
     Indication: Product used for unknown indication
     Route: 065
  2. RECORLEV [Interacting]
     Active Substance: LEVOKETOCONAZOLE
     Indication: Pituitary-dependent Cushing^s syndrome
     Route: 048
     Dates: start: 20220813
  3. RECORLEV [Interacting]
     Active Substance: LEVOKETOCONAZOLE
     Dosage: 300 MILLIGRAM, BID (2 TABLETS,  2X/DAY)
     Route: 048
     Dates: start: 20231020
  4. RECORLEV [Interacting]
     Active Substance: LEVOKETOCONAZOLE
     Dosage: 300 MILLIGRAM, BID (2 TABLETS,  2X/DAY)
     Route: 048
     Dates: start: 20250121
  5. LIRAGLUTIDE [Suspect]
     Active Substance: LIRAGLUTIDE
     Indication: Product used for unknown indication
     Route: 065
  6. INSULIN NOS [Suspect]
     Active Substance: INSULIN NOS
     Indication: Product used for unknown indication
     Route: 065
  7. MIRALAX [Concomitant]
     Active Substance: POLYETHYLENE GLYCOL 3350
     Route: 065

REACTIONS (17)
  - Myocardial ischaemia [Unknown]
  - Productive cough [Unknown]
  - Blood phosphorus increased [Not Recovered/Not Resolved]
  - Influenza [Recovering/Resolving]
  - Sleep disorder [Recovering/Resolving]
  - Blood glucose increased [Unknown]
  - Brain fog [Not Recovered/Not Resolved]
  - Memory impairment [Not Recovered/Not Resolved]
  - Feeling abnormal [Not Recovered/Not Resolved]
  - Mass [Unknown]
  - Vomiting [Recovering/Resolving]
  - Arthralgia [Not Recovered/Not Resolved]
  - Fatigue [Recovering/Resolving]
  - Diarrhoea [Recovering/Resolving]
  - Drug interaction [Unknown]
  - Product dose omission in error [Unknown]
  - Medication error [Unknown]

NARRATIVE: CASE EVENT DATE: 20240101
